FAERS Safety Report 7064094-X (Version None)
Quarter: 2010Q4

REPORT INFORMATION
  Report Type: 
  Country: None (occurrence: None)
  Receive Date: 20101027
  Receipt Date: 20101013
  Transmission Date: 20110411
  Serious: Yes (Other)
  Sender: FDA-Public Use
  Company Number: US-ELI_LILLY_AND_COMPANY-US201010000040

PATIENT
  Age: 52 Year
  Sex: Female
  Weight: 53.968 kg

DRUGS (10)
  1. BYETTA [Suspect]
     Indication: DIABETES MELLITUS
     Dosage: 5 UG, 2/D
     Dates: end: 20100916
  2. METFORMIN [Concomitant]
     Dosage: UNK, 3/D
     Route: 048
  3. CRESTOR [Concomitant]
     Dosage: 40 MG, DAILY (1/D)
     Route: 048
  4. LEXAPRO [Concomitant]
     Dosage: 20 MG, DAILY (1/D)
     Route: 048
  5. ATENOLOL [Concomitant]
     Dosage: 50 MG, DAILY (1/D)
     Route: 048
  6. DIAZIDE [Concomitant]
     Dosage: 1 D/F, EACH EVENING
     Route: 048
  7. ACTOS [Concomitant]
     Dosage: 45 MG, DAILY (1/D)
     Route: 048
  8. DITROPAN [Concomitant]
     Route: 048
  9. CLONAZEPAM [Concomitant]
     Route: 048
  10. JANUVIA [Concomitant]
     Dosage: 100 MG, DAILY (1/D)
     Route: 048

REACTIONS (4)
  - BLOOD TRIGLYCERIDES INCREASED [None]
  - DIARRHOEA [None]
  - PANCREATITIS [None]
  - WEIGHT DECREASED [None]
